FAERS Safety Report 12766117 (Version 2)
Quarter: 2016Q4

REPORT INFORMATION
  Report Type: Spontaneous
  Country: US (occurrence: US)
  Receive Date: 20160921
  Receipt Date: 20161104
  Transmission Date: 20170207
  Serious: No
  Sender: FDA-Public Use
  Company Number: US-JNJFOC-20160904346

PATIENT
  Age: 61 Year
  Sex: Male
  Weight: 95.26 kg

DRUGS (3)
  1. METOPROLOL. [Suspect]
     Active Substance: METOPROLOL
     Indication: HEART RATE IRREGULAR
     Route: 048
     Dates: start: 20160826
  2. ACYCLOVIR. [Concomitant]
     Active Substance: ACYCLOVIR
     Indication: ORAL HERPES
     Dosage: EVERY 4-5 DAYS
     Route: 048
     Dates: start: 2001
  3. XARELTO [Suspect]
     Active Substance: RIVAROXABAN
     Indication: HEART RATE IRREGULAR
     Route: 048
     Dates: start: 20160826

REACTIONS (8)
  - Medication error [Unknown]
  - Off label use [Unknown]
  - Drug ineffective [Unknown]
  - Diarrhoea [Unknown]
  - Fear [Unknown]
  - Product use issue [Unknown]
  - Abdominal discomfort [Unknown]
  - Abdominal pain [Not Recovered/Not Resolved]

NARRATIVE: CASE EVENT DATE: 20160826
